FAERS Safety Report 19086909 (Version 1)
Quarter: 2021Q2

REPORT INFORMATION
  Report Type: Spontaneous
  Country: US (occurrence: US)
  Receive Date: 20210401
  Receipt Date: 20210401
  Transmission Date: 20210717
  Serious: Yes (Life-Threatening, Hospitalization)
  Sender: FDA-Public Use
  Company Number: None

PATIENT
  Age: 79 Year
  Sex: Male
  Weight: 89 kg

DRUGS (2)
  1. HEPARIN (HEPARIN NA 5000 UNT/0.5ML INJ, VIL, 0.5ML) [Suspect]
     Active Substance: HEPARIN SODIUM
     Dosage: ?          OTHER FREQUENCY:UNKNOWN;?
     Route: 058
     Dates: start: 20201005, end: 20201007
  2. HEPARIN (HEPARIN CA 25000 UNT/0.5ML INJ, VIL, 0.5ML) [Suspect]
     Active Substance: HEPARIN CALCIUM
     Indication: THROMBOSIS
     Dosage: ?          OTHER FREQUENCY:PER HOUR;OTHER ROUTE:IV?
     Route: 042
     Dates: start: 20200929, end: 20201002

REACTIONS (3)
  - Thrombocytopenia [None]
  - Haemoglobin decreased [None]
  - Platelet count decreased [None]

NARRATIVE: CASE EVENT DATE: 20201009
